FAERS Safety Report 12304213 (Version 1)
Quarter: 2016Q2

REPORT INFORMATION
  Report Type: Spontaneous
  Country: None (occurrence: None)
  Receive Date: 20160425
  Receipt Date: 20160425
  Transmission Date: 20160815
  Serious: No
  Sender: FDA-Public Use
  Company Number: None

PATIENT
  Age: 57 Year
  Sex: Male

DRUGS (1)
  1. CYMBALTA [Suspect]
     Active Substance: DULOXETINE HYDROCHLORIDE

REACTIONS (7)
  - Diabetic neuropathy [None]
  - Arthropathy [None]
  - Sleep apnoea syndrome [None]
  - Glycosylated haemoglobin increased [None]
  - Drug ineffective [None]
  - Arthritis [None]
  - Blood glucose increased [None]
